FAERS Safety Report 5167912-5 (Version None)
Quarter: 2006Q4

REPORT INFORMATION
  Report Type: 
  Country: None (occurrence: None)
  Receive Date: 20061208
  Receipt Date: 20061201
  Transmission Date: 20070319
  Serious: Yes (Other)
  Sender: FDA-Public Use
  Company Number: PHNU2006DE04029

PATIENT
  Sex: Female

DRUGS (3)
  1. IMMUNOSPORIN [Suspect]
     Dosage: 200 MG DAILY
     Route: 048
     Dates: start: 20060601, end: 20060701
  2. ANAESTHETICS [Concomitant]
  3. ANTIBIOTICS [Concomitant]

REACTIONS (2)
  - HEPATIC FAILURE [None]
  - TRANSAMINASES INCREASED [None]
